FAERS Safety Report 5160569-9 (Version None)
Quarter: 2006Q4

REPORT INFORMATION
  Report Type: 
  Country: None (occurrence: None)
  Receive Date: 20061121
  Receipt Date: 20061108
  Transmission Date: 20070319
  Serious: Yes (Other)
  Sender: FDA-Public Use
  Company Number: 2006140445

PATIENT
  Age: 41 Year
  Sex: Female
  Weight: 95.2554 kg

DRUGS (4)
  1. FELDENE [Suspect]
     Indication: ARTHRALGIA
     Dosage: 20 MG (20 MG, 1 IN 1 D)
     Dates: start: 20060101
  2. LAMICTAL [Concomitant]
  3. LANOXIN [Concomitant]
  4. PROMETHAZINE [Concomitant]

REACTIONS (7)
  - CHEST DISCOMFORT [None]
  - CHOLELITHIASIS [None]
  - CONDITION AGGRAVATED [None]
  - DRUG INEFFECTIVE [None]
  - GASTROINTESTINAL ULCER [None]
  - HEPATIC STEATOSIS [None]
  - NAUSEA [None]
